FAERS Safety Report 4800289-0 (Version None)
Quarter: 2005Q4

REPORT INFORMATION
  Report Type: 
  Country: None (occurrence: None)
  Receive Date: 20051017
  Receipt Date: 20050819
  Transmission Date: 20060501
  Serious: Yes (Other)
  Sender: FDA-Public Use
  Company Number: US-BRISTOL-MYERS SQUIBB COMPANY-13083746

PATIENT
  Age: 45 Year
  Sex: Female
  Weight: 57 kg

DRUGS (3)
  1. ABILIFY [Suspect]
     Indication: BIPOLAR I DISORDER
     Route: 048
     Dates: end: 20050822
  2. LEXAPRO [Suspect]
     Indication: BIPOLAR I DISORDER
     Dosage: DOSAGE: INCREASED TO 20 MG DIALY ON 06-AUG-2005 TO CONTINUING
     Route: 048
     Dates: start: 20050730
  3. KLONOPIN [Concomitant]

REACTIONS (4)
  - BULIMIA NERVOSA [None]
  - DEPRESSION [None]
  - INCREASED APPETITE [None]
  - RESTLESSNESS [None]
